FAERS Safety Report 7430161-1 (Version None)
Quarter: 2011Q2

REPORT INFORMATION
  Report Type: 
  Country: None (occurrence: None)
  Receive Date: 20110421
  Receipt Date: 20110420
  Transmission Date: 20111010
  Serious: Yes (Hospitalization)
  Sender: FDA-Public Use
  Company Number: IT-SANOFI-AVENTIS-2011SA024229

PATIENT
  Age: 78 Year
  Sex: Male

DRUGS (10)
  1. ASPIRIN [Concomitant]
  2. ALDACTONE [Suspect]
     Route: 048
     Dates: start: 20110321, end: 20110401
  3. PLAVIX [Concomitant]
  4. BISOPROLOL FUMARATE [Suspect]
     Route: 048
     Dates: start: 20110321, end: 20110401
  5. TRIATEC [Suspect]
     Route: 048
     Dates: start: 20110321, end: 20110401
  6. LASIX [Suspect]
     Route: 048
     Dates: start: 20110321, end: 20110401
  7. PANTORC [Concomitant]
  8. ALLOPURINOL [Concomitant]
  9. AMLODIPINE [Suspect]
     Route: 048
     Dates: start: 20110321, end: 20110401
  10. KCL-RETARD [Suspect]
     Route: 048
     Dates: start: 20110321, end: 20110401

REACTIONS (3)
  - SINUS BRADYCARDIA [None]
  - RENAL FAILURE ACUTE [None]
  - HYPERKALAEMIA [None]
